FAERS Safety Report 17242568 (Version 1)
Quarter: 2020Q1

REPORT INFORMATION
  Report Type: Spontaneous
  Country: US (occurrence: US)
  Receive Date: 20200106
  Receipt Date: 20200106
  Transmission Date: 20200409
  Serious: No
  Sender: FDA-Public Use
  Company Number: None

PATIENT
  Age: 78 Year
  Sex: Male

DRUGS (17)
  1. BENZONATATE. [Concomitant]
     Active Substance: BENZONATATE
  2. NITROGLYCERN SUB [Concomitant]
  3. NORTHERA [Suspect]
     Active Substance: DROXIDOPA
     Indication: HYPOTENSION
     Route: 048
     Dates: start: 20191127
  4. ALBUTEROL. [Concomitant]
     Active Substance: ALBUTEROL
  5. FLOVENT HFA [Concomitant]
     Active Substance: FLUTICASONE PROPIONATE
  6. MIRTAZAPINE. [Concomitant]
     Active Substance: MIRTAZAPINE
  7. IPRATROPIUM SOL ALBUTER [Concomitant]
  8. RABEPRAZOLE [Concomitant]
     Active Substance: RABEPRAZOLE
  9. BISOPROL FUM [Concomitant]
     Active Substance: BISOPROLOL FUMARATE
  10. DOK [Concomitant]
     Active Substance: DOCUSATE SODIUM
  11. FLUTICASONE. [Concomitant]
     Active Substance: FLUTICASONE
  12. DUTASTERIDE. [Concomitant]
     Active Substance: DUTASTERIDE
  13. LACTULOSE SOL [Concomitant]
  14. LATANOPROST SOL .005% [Concomitant]
  15. AMLODIPINE [Concomitant]
     Active Substance: AMLODIPINE BESYLATE
  16. HYDRALAZINE [Concomitant]
     Active Substance: HYDRALAZINE HYDROCHLORIDE
  17. RYTARY [Concomitant]
     Active Substance: CARBIDOPA\LEVODOPA

REACTIONS (3)
  - Hypertension [None]
  - Nausea [None]
  - Chronic obstructive pulmonary disease [None]

NARRATIVE: CASE EVENT DATE: 20200103
